FAERS Safety Report 13948478 (Version 2)
Quarter: 2017Q3

REPORT INFORMATION
  Report Type: Report from Study
  Country: NL (occurrence: NL)
  Receive Date: 20170908
  Receipt Date: 20170921
  Transmission Date: 20171128
  Serious: Yes (Death)
  Sender: FDA-Public Use
  Company Number: PHHY2017NL132623

PATIENT
  Age: 70 Year
  Sex: Male

DRUGS (12)
  1. TIOTROPIUM [Concomitant]
     Active Substance: TIOTROPIUM
     Indication: PRODUCT USED FOR UNKNOWN INDICATION
     Dosage: 2.5 UNK (1X2 DF)
     Route: 065
  2. CALCI CHEW [Concomitant]
     Indication: PRODUCT USED FOR UNKNOWN INDICATION
     Dosage: 500 UNK, QD (500MG/400 IU)
     Route: 065
     Dates: start: 20161004
  3. PREDILONE [Concomitant]
     Indication: PRODUCT USED FOR UNKNOWN INDICATION
     Dosage: 30 UNK, (1X30 MG)
     Route: 048
     Dates: start: 20170502, end: 20170506
  4. ZOMETA [Suspect]
     Active Substance: ZOLEDRONIC ACID
     Indication: METASTASES TO BONE
     Dosage: UNK
     Route: 042
     Dates: start: 20160531
  5. RADIUM [Concomitant]
     Active Substance: RADIUM
     Dosage: 2 UNK,
     Route: 042
     Dates: start: 20170718
  6. STRIVERDI RESPIMAT [Concomitant]
     Active Substance: OLODATEROL HYDROCHLORIDE
     Indication: PRODUCT USED FOR UNKNOWN INDICATION
     Dosage: 2.5 UG, BID (1X2 DF)
     Route: 065
  7. ZOMETA [Suspect]
     Active Substance: ZOLEDRONIC ACID
     Dosage: 0.04 MG/DL, UNK
     Route: 042
     Dates: start: 20161004
  8. LEUPRORELINE [Concomitant]
     Active Substance: LEUPROLIDE
     Indication: PRODUCT USED FOR UNKNOWN INDICATION
     Dosage: 5 MG, UNK (ONCE IN 3 MONTHS)
     Route: 058
  9. LOPERAMIDE [Concomitant]
     Active Substance: LOPERAMIDE
     Indication: PRODUCT USED FOR UNKNOWN INDICATION
     Dosage: 2 MG, UNK (AS NEEDED)
     Route: 048
     Dates: start: 20170710
  10. RADIUM [Concomitant]
     Active Substance: RADIUM
     Indication: PRODUCT USED FOR UNKNOWN INDICATION
     Dosage: 2 UNK,
     Route: 042
     Dates: start: 20170620
  11. ZOMETA [Suspect]
     Active Substance: ZOLEDRONIC ACID
     Dosage: 1 DF, QID
     Route: 042
     Dates: start: 20170822
  12. CYPROTERONE [Concomitant]
     Active Substance: CYPROTERONE
     Indication: PRODUCT USED FOR UNKNOWN INDICATION
     Dosage: 100 MG, QD (2X50 MG)
     Route: 048
     Dates: start: 20170502

REACTIONS (2)
  - Therapy non-responder [Fatal]
  - Malaise [Fatal]

NARRATIVE: CASE EVENT DATE: 20170901
